FAERS Safety Report 4447453-0 (Version None)
Quarter: 2004Q3

REPORT INFORMATION
  Report Type: 
  Country: None (occurrence: None)
  Receive Date: 20040913
  Receipt Date: 20040831
  Transmission Date: 20050211
  Serious: Yes (Hospitalization)
  Sender: FDA-Public Use
  Company Number: JP-JNJFOC-20040800003

PATIENT
  Sex: Female
  Weight: 55 kg

DRUGS (16)
  1. REMICADE [Suspect]
     Dosage: PATIENT HAD RECEIVED A TOTAL OF 5 INFLIXIMAB INFUSIONS AT THE TIME OF ONSET OF THE EVENT
     Route: 042
  2. REMICADE [Suspect]
     Route: 042
  3. REMICADE [Suspect]
     Route: 042
  4. REMICADE [Suspect]
     Route: 042
  5. REMICADE [Suspect]
     Route: 042
  6. REMICADE [Suspect]
     Indication: RHEUMATOID ARTHRITIS
     Route: 042
  7. METHOTREXATE [Suspect]
     Route: 049
  8. METHOTREXATE [Suspect]
     Route: 049
  9. METHOTREXATE [Suspect]
     Indication: RHEUMATOID ARTHRITIS
     Route: 049
  10. PREDONINE [Suspect]
     Indication: RHEUMATOID ARTHRITIS
     Route: 049
  11. HYPEN [Concomitant]
     Indication: RHEUMATOID ARTHRITIS
     Route: 049
  12. FLAVITAN [Concomitant]
     Route: 049
  13. PYDOXAL [Concomitant]
     Route: 049
  14. MAGLAX [Concomitant]
     Route: 049
  15. ISCOTIN [Concomitant]
     Route: 049
  16. TSUMURA (TJ-41) HOCHUEKKITO GRANULES [Concomitant]
     Route: 049

REACTIONS (3)
  - CYTOMEGALOVIRUS INFECTION [None]
  - GRANULOCYTOPENIA [None]
  - SOMNOLENCE [None]
